FAERS Safety Report 10184581 (Version 1)
Quarter: 2014Q2

REPORT INFORMATION
  Report Type: Spontaneous
  Country: ES (occurrence: ES)
  Receive Date: 20140521
  Receipt Date: 20140521
  Transmission Date: 20141212
  Serious: Yes (Hospitalization)
  Sender: FDA-Public Use
  Company Number: ES-ROCHE-1399755

PATIENT
  Age: 55 Year
  Sex: Male

DRUGS (16)
  1. SULFAMETHOXAZOLE/TRIMETHOPRIM [Suspect]
     Indication: RENAL TRANSPLANT
     Route: 048
     Dates: start: 20130325, end: 20130610
  2. VALCYTE [Suspect]
     Indication: ANTIVIRAL PROPHYLAXIS
     Route: 048
     Dates: start: 20130325, end: 20130610
  3. MYFORTIC [Suspect]
     Indication: RENAL TRANSPLANT
     Route: 048
     Dates: start: 20130523, end: 20130610
  4. ADALAT OROS 30 [Concomitant]
     Indication: HYPERTENSION
     Route: 048
     Dates: start: 20130325
  5. ENALAPRIL [Concomitant]
     Indication: HYPERTENSION
     Route: 048
     Dates: start: 20130325
  6. APROVEL [Concomitant]
     Indication: HYPERTENSION
     Route: 048
     Dates: start: 20130325
  7. MASTICAL [Concomitant]
     Indication: HYPOCALCAEMIA
     Route: 048
     Dates: start: 20130325
  8. ROCALTROL [Concomitant]
     Indication: VITAMIN D DEFICIENCY
     Route: 048
     Dates: start: 20130325
  9. PANTOPRAZOL [Concomitant]
     Indication: PROPHYLAXIS AGAINST GASTROINTESTINAL ULCER
     Route: 048
     Dates: start: 20130325
  10. LANTUS [Concomitant]
     Indication: TYPE 2 DIABETES MELLITUS
     Route: 058
     Dates: start: 20130325
  11. HUMALOG [Concomitant]
     Indication: TYPE 2 DIABETES MELLITUS
     Route: 058
     Dates: start: 20130325
  12. INDAPAMIDA [Concomitant]
     Indication: HYPERTENSION
     Route: 048
     Dates: start: 20130325
  13. CARVEDILOL [Concomitant]
     Indication: HYPERTENSION
     Route: 048
     Dates: start: 20130325
  14. DACORTIN [Concomitant]
     Indication: RENAL TRANSPLANT
     Route: 048
     Dates: start: 20130325
  15. DOXAZOSINA [Concomitant]
     Indication: HYPERTENSION
     Route: 048
     Dates: start: 20130325
  16. ADVAGRAF [Concomitant]
     Indication: RENAL TRANSPLANT
     Route: 048
     Dates: start: 20130527

REACTIONS (1)
  - Febrile neutropenia [Recovered/Resolved]
